FAERS Safety Report 8195736-3 (Version None)
Quarter: 2012Q1

REPORT INFORMATION
  Report Type: 
  Country: None (occurrence: None)
  Receive Date: 20120308
  Receipt Date: 20120227
  Transmission Date: 20120608
  Serious: Yes (Hospitalization)
  Sender: FDA-Public Use
  Company Number: GXBR2012US000786

PATIENT
  Sex: Female
  Weight: 48 kg

DRUGS (20)
  1. BENADRYL [Concomitant]
     Dosage: UNK DF, UNK
     Dates: start: 20100823
  2. POTASSIUM CHLORIDE [Concomitant]
     Dosage: UNK DF, UNK
     Dates: start: 20100914
  3. NEURONTIN [Concomitant]
     Dosage: 300 MG, UNK
     Dates: start: 20100928
  4. PROCHLORPERAZINE MALEATE [Concomitant]
     Dosage: UNK DF, UNK
     Dates: start: 20100901
  5. MULTIVITAMIN ^LAPPE^ [Concomitant]
     Dosage: UNK DF, UNK
     Dates: start: 20100413
  6. PHENERGAN [Concomitant]
     Dosage: UNK DF, UNK
     Dates: start: 20100713
  7. NEULASTA [Concomitant]
     Dosage: UNK DF, UNK
     Dates: start: 20120101
  8. SOLU-MEDROL [Concomitant]
     Dosage: UNK DF, UNK
     Dates: start: 20100823
  9. MEGACE [Concomitant]
     Dosage: UNK DF, UNK
  10. LEUKINE [Concomitant]
     Dosage: UNK DF, UNK
     Dates: start: 20100907
  11. ALOXI [Concomitant]
     Dosage: UNK DF, UNK
     Dates: start: 20100713
  12. VICODIN [Concomitant]
     Dosage: UNK DF, UNK
  13. IBUPROFEN (ADVIL) [Concomitant]
     Dosage: UNK DF, UNK
     Dates: start: 20100713
  14. TRAZODONE HCL [Concomitant]
     Dosage: UNK DF, UNK
     Dates: start: 20090713
  15. DOCETAXEL [Suspect]
     Indication: BREAST CANCER METASTATIC
     Dosage: 75 MG/M2, CYCLE 22
     Route: 042
     Dates: start: 20120103, end: 20120103
  16. REGLAN [Concomitant]
     Dosage: UNK DF, UNK
     Dates: start: 20100901
  17. DOCETAXEL [Suspect]
     Dosage: 75 MG/M2, CYCLE 1
     Route: 042
     Dates: start: 20100901, end: 20100901
  18. DEXAMETHASONE [Concomitant]
     Dosage: UNK DF, UNK
     Dates: start: 20100901
  19. PROMETHAZINE [Concomitant]
     Dosage: UNK DF, UNK
     Route: 054
     Dates: start: 20100901
  20. DESYREL [Concomitant]
     Dosage: UNK DF, UNK

REACTIONS (4)
  - FLANK PAIN [None]
  - DYSURIA [None]
  - DEHYDRATION [None]
  - PYELONEPHRITIS ACUTE [None]
